FAERS Safety Report 14108890 (Version 2)
Quarter: 2017Q4

REPORT INFORMATION
  Report Type: Report from Study
  Country: US (occurrence: US)
  Receive Date: 20171019
  Receipt Date: 20171026
  Transmission Date: 20180321
  Serious: No
  Sender: FDA-Public Use
  Company Number: US-TESARO, INC-US-2017TSO03295

PATIENT

DRUGS (2)
  1. ZEJULA [Suspect]
     Active Substance: NIRAPARIB
     Indication: OVARIAN CANCER
     Dosage: 300 MG, QD
     Route: 048
     Dates: start: 20171009
  2. POTASSIUM [Concomitant]
     Active Substance: POTASSIUM
     Indication: PRODUCT USED FOR UNKNOWN INDICATION
     Dosage: UNK

REACTIONS (16)
  - Productive cough [Not Recovered/Not Resolved]
  - Haematochezia [Unknown]
  - Insomnia [Unknown]
  - Abdominal discomfort [Unknown]
  - Blood potassium decreased [Unknown]
  - Retching [Not Recovered/Not Resolved]
  - Dry mouth [Unknown]
  - Stomatitis [Not Recovered/Not Resolved]
  - Dysphagia [Unknown]
  - Rhinorrhoea [Unknown]
  - Haemoglobin decreased [Not Recovered/Not Resolved]
  - Haematocrit decreased [Unknown]
  - Anaemia [Unknown]
  - Fatigue [Not Recovered/Not Resolved]
  - Gingival pain [Not Recovered/Not Resolved]
  - Faeces hard [Unknown]

NARRATIVE: CASE EVENT DATE: 20171013
